FAERS Safety Report 5135595-6 (Version None)
Quarter: 2006Q4

REPORT INFORMATION
  Report Type: 
  Country: None (occurrence: None)
  Receive Date: 20061026
  Receipt Date: 20050727
  Transmission Date: 20070319
  Serious: Yes (Hospitalization, Disabling)
  Sender: FDA-Public Use
  Company Number: US-ROCHE-412370

PATIENT
  Age: 19 Year
  Sex: Female
  Weight: 68 kg

DRUGS (2)
  1. ACCUTANE [Suspect]
     Indication: ACNE
     Route: 048
     Dates: start: 19990715, end: 19990915
  2. IBUPROFEN [Concomitant]

REACTIONS (54)
  - AFFECTIVE DISORDER [None]
  - ALOPECIA [None]
  - ANAL FISSURE [None]
  - ANHEDONIA [None]
  - ANXIETY [None]
  - ARTHRALGIA [None]
  - ASTHENIA [None]
  - BACK PAIN [None]
  - BRONCHITIS [None]
  - CHEST PAIN [None]
  - COLITIS [None]
  - COLITIS ULCERATIVE [None]
  - DEHYDRATION [None]
  - DEPRESSION [None]
  - DIZZINESS [None]
  - DRUG HYPERSENSITIVITY [None]
  - DRY THROAT [None]
  - DYSPHORIA [None]
  - DYSPLASIA [None]
  - FRUSTRATION [None]
  - GASTROINTESTINAL DISORDER [None]
  - HAEMORRHOIDS [None]
  - HEADACHE [None]
  - HEPATIC ENZYME INCREASED [None]
  - INFLAMMATORY BOWEL DISEASE [None]
  - INTESTINAL HAEMORRHAGE [None]
  - IRON DEFICIENCY ANAEMIA [None]
  - IRRITABLE BOWEL SYNDROME [None]
  - LUNG NEOPLASM [None]
  - MALAISE [None]
  - MALNUTRITION [None]
  - MICROCYTIC ANAEMIA [None]
  - MULTI-ORGAN DISORDER [None]
  - MYALGIA [None]
  - NASAL CONGESTION [None]
  - NECK PAIN [None]
  - PAPILLOMA VIRAL INFECTION [None]
  - PARAESTHESIA [None]
  - PHARYNGOLARYNGEAL PAIN [None]
  - PNEUMONIA [None]
  - PNEUMONITIS [None]
  - POSTNASAL DRIP [None]
  - PULMONARY CAVITATION [None]
  - PULMONARY EMBOLISM [None]
  - PYREXIA [None]
  - SEPTIC EMBOLUS [None]
  - SMEAR CERVIX ABNORMAL [None]
  - STRESS [None]
  - SYNCOPE VASOVAGAL [None]
  - TACHYCARDIA [None]
  - THROMBOCYTHAEMIA [None]
  - TINNITUS [None]
  - UPPER RESPIRATORY TRACT INFECTION [None]
  - WEIGHT DECREASED [None]
